FAERS Safety Report 18488277 (Version 1)
Quarter: 2020Q4

REPORT INFORMATION
  Report Type: Spontaneous
  Country: US (occurrence: US)
  Receive Date: 20201110
  Receipt Date: 20201110
  Transmission Date: 20210114
  Serious: No
  Sender: FDA-Public Use
  Company Number: US-SA-2020SA313476

PATIENT

DRUGS (6)
  1. LOSARTAN AND HYDROCHLOROTHIAZIDE [Concomitant]
     Active Substance: HYDROCHLOROTHIAZIDE\LOSARTAN POTASSIUM
  2. ALLEGRA [Concomitant]
     Active Substance: FEXOFENADINE HYDROCHLORIDE
  3. DUPIXENT [Suspect]
     Active Substance: DUPILUMAB
     Indication: RESPIRATORY DISORDER
     Dosage: 300 MG, QOW
     Route: 058
     Dates: start: 20200825
  4. FLUTICASON [Concomitant]
     Active Substance: FLUTICASONE
  5. BUPROPION. [Concomitant]
     Active Substance: BUPROPION
  6. ALFUZOSIN [Concomitant]
     Active Substance: ALFUZOSIN

REACTIONS (2)
  - Hyperhidrosis [Unknown]
  - Chills [Unknown]

NARRATIVE: CASE EVENT DATE: 20201015
